FAERS Safety Report 16918030 (Version 1)
Quarter: 2019Q4

REPORT INFORMATION
  Report Type: Report from Study
  Country: CA (occurrence: CA)
  Receive Date: 20191015
  Receipt Date: 20191015
  Transmission Date: 20200122
  Serious: Yes (Hospitalization, Other)
  Sender: FDA-Public Use
  Company Number: CA-AMGEN-CANSL2019151067

PATIENT
  Age: 74 Year
  Sex: Female
  Weight: 76 kg

DRUGS (11)
  1. ROSUVASTATIN. [Concomitant]
     Active Substance: ROSUVASTATIN
     Dosage: 10 MILLIGRAM, AT BED TIME
     Route: 048
  2. MORPHINE [Concomitant]
     Active Substance: MORPHINE
  3. FLUTICASONE FUROATE;VILANTEROL [Concomitant]
     Active Substance: FLUTICASONE FUROATE\VILANTEROL TRIFENATATE
     Dosage: 200/25 MCG, QAM-BREO
  4. CANDESARTAN+HYDROCHLOROTHIAZIDE [Concomitant]
     Active Substance: CANDESARTAN CILEXETIL\HYDROCHLOROTHIAZIDE
     Dosage: 16/12.5 MG, QD
  5. PROLIA [Suspect]
     Active Substance: DENOSUMAB
     Indication: OSTEOPOROSIS POSTMENOPAUSAL
     Dosage: 60 MILLIGRAM PER MILLILITRE, Q6MO
     Route: 058
     Dates: start: 201609
  6. CALCIUM CARBONATE. [Concomitant]
     Active Substance: CALCIUM CARBONATE
     Dosage: 500 MILLIGRAM, BID
     Route: 048
  7. MAGNESIUM OXIDE. [Concomitant]
     Active Substance: MAGNESIUM OXIDE
     Dosage: 420 MILLIGRAM, QD
     Route: 048
  8. VITAMIN D [COLECALCIFEROL] [Concomitant]
     Active Substance: CHOLECALCIFEROL
     Dosage: 1000 UNIT, QD
     Route: 048
  9. FENTANYL. [Concomitant]
     Active Substance: FENTANYL
     Dosage: 25-50 MCG
  10. CYANOCOBALAMINE [Concomitant]
     Active Substance: CYANOCOBALAMIN
     Dosage: 1200 MICROGRAM, QD
     Route: 048
  11. MULTIPLE VITAMINS WITH MINERALS [Concomitant]
     Active Substance: MINERALS\VITAMINS
     Dosage: 1 TABLET, QD
     Route: 048

REACTIONS (14)
  - Tenderness [Recovering/Resolving]
  - Diverticulum intestinal [Unknown]
  - Streptococcal sepsis [Recovering/Resolving]
  - Acute kidney injury [Recovered/Resolved]
  - Biliary dilatation [Unknown]
  - Oedema peripheral [Recovering/Resolving]
  - Renal cyst [Unknown]
  - Plantar erythema [Recovering/Resolving]
  - Arteriosclerosis [Unknown]
  - Spinal osteoarthritis [Unknown]
  - Exostosis [Unknown]
  - Erythema [Recovering/Resolving]
  - Spondylolisthesis [Unknown]
  - Ovarian vein thrombosis [Recovering/Resolving]
